FAERS Safety Report 8085770-6 (Version None)
Quarter: 2012Q1

REPORT INFORMATION
  Report Type: 
  Country: None (occurrence: None)
  Receive Date: 20120128
  Receipt Date: 20110606
  Transmission Date: 20120608
  Serious: No
  Sender: FDA-Public Use
  Company Number: US-ABBOTT-11P-163-0731185-00

PATIENT
  Sex: Female
  Weight: 108.96 kg

DRUGS (5)
  1. FERROUS SULFATE TAB [Concomitant]
     Indication: ANAEMIA
     Route: 048
  2. CIPROFLOXACIN [Concomitant]
     Indication: CROHN'S DISEASE
     Route: 048
     Dates: start: 20110401, end: 20110601
  3. IMODIUM [Concomitant]
     Indication: DIARRHOEA
     Route: 048
  4. HUMIRA [Suspect]
     Route: 058
     Dates: start: 20110525, end: 20110525
  5. HUMIRA [Suspect]
     Indication: CROHN'S DISEASE
     Route: 058
     Dates: start: 20110511, end: 20110511

REACTIONS (3)
  - INJECTION SITE PRURITUS [None]
  - INJECTION SITE ERYTHEMA [None]
  - RASH [None]
